FAERS Safety Report 7994605-9 (Version None)
Quarter: 2011Q4

REPORT INFORMATION
  Report Type: 
  Country: None (occurrence: None)
  Receive Date: 20111220
  Receipt Date: 20111208
  Transmission Date: 20120403
  Serious: Yes (Hospitalization, Disabling, Other)
  Sender: FDA-Public Use
  Company Number: BR-US-EMD SERONO, INC.-7100951

PATIENT
  Sex: Female

DRUGS (1)
  1. REBIF [Suspect]
     Indication: RELAPSING-REMITTING MULTIPLE SCLEROSIS
     Dates: start: 20080101

REACTIONS (12)
  - SOMNOLENCE [None]
  - DIZZINESS [None]
  - WHITE BLOOD CELL COUNT DECREASED [None]
  - ANAESTHETIC COMPLICATION [None]
  - APHASIA [None]
  - URINARY TRACT INFECTION [None]
  - SENSATION OF HEAVINESS [None]
  - FATIGUE [None]
  - COGNITIVE DISORDER [None]
  - PLATELET COUNT DECREASED [None]
  - CONVULSION [None]
  - WALKING DISABILITY [None]
